FAERS Safety Report 21523195 (Version 4)
Quarter: 2023Q2

REPORT INFORMATION
  Report Type: Report from Study
  Country: US (occurrence: US)
  Receive Date: 20221029
  Receipt Date: 20230502
  Transmission Date: 20230721
  Serious: Yes (Other)
  Sender: FDA-Public Use
  Company Number: US-ABBVIE-22K-163-4318747-00

PATIENT
  Sex: Female

DRUGS (6)
  1. HUMIRA [Suspect]
     Active Substance: ADALIMUMAB
     Indication: Ankylosing spondylitis
     Dosage: CITRATE FREE FORM STRENGTH: 40 MILLIGRAM
     Route: 058
  2. HUMIRA [Suspect]
     Active Substance: ADALIMUMAB
     Dosage: FORM STRENGTH: 40 MILLIGRAM CITRATE FREE
     Route: 058
  3. HUMIRA [Suspect]
     Active Substance: ADALIMUMAB
     Dosage: CITRATE FREE?FORM STRENGTH: 40 MILLIGRAM
     Route: 058
     Dates: start: 20201026
  4. PFIZER-BIONTECH COVID-19 VACCINE [Concomitant]
     Active Substance: TOZINAMERAN
     Indication: COVID-19 immunisation
     Dosage: TIME INTERVAL: 1 TOTAL: FIRST DOSE?1 IN ONCE
     Route: 030
     Dates: start: 20210201, end: 20210201
  5. PFIZER-BIONTECH COVID-19 VACCINE [Concomitant]
     Active Substance: TOZINAMERAN
     Indication: COVID-19 immunisation
     Dosage: TIME INTERVAL: 1 TOTAL: SECOND DOSE?1 IN ONCE
     Route: 030
     Dates: start: 20210228, end: 20210228
  6. MODERNA COVID-19 VACCINE [Suspect]
     Active Substance: ELASOMERAN
     Indication: COVID-19 immunisation
     Dosage: BOOSTER DOSE?1 IN ONCE
     Route: 030
     Dates: start: 20210801, end: 20210801

REACTIONS (22)
  - Knee arthroplasty [Recovering/Resolving]
  - Illness [Recovered/Resolved]
  - Nasal ulcer [Recovered/Resolved]
  - Dystonic tremor [Not Recovered/Not Resolved]
  - Arthropathy [Recovering/Resolving]
  - Decreased appetite [Unknown]
  - Herpes zoster [Recovered/Resolved]
  - Weight decreased [Unknown]
  - Asthenia [Unknown]
  - Walking aid user [Unknown]
  - Brain fog [Recovering/Resolving]
  - COVID-19 [Recovering/Resolving]
  - Tremor [Not Recovered/Not Resolved]
  - Arthralgia [Not Recovered/Not Resolved]
  - Localised infection [Unknown]
  - Injection site hypersensitivity [Recovered/Resolved]
  - Injection site pain [Recovered/Resolved]
  - Injection site swelling [Recovered/Resolved]
  - Herpes zoster [Recovered/Resolved]
  - Pseudomonas infection [Recovered/Resolved]
  - Oral herpes [Recovered/Resolved]
  - Body temperature [Unknown]

NARRATIVE: CASE EVENT DATE: 20220101
